FAERS Safety Report 15419885 (Version 1)
Quarter: 2018Q3

REPORT INFORMATION
  Report Type: Spontaneous
  Country: US (occurrence: US)
  Receive Date: 20180924
  Receipt Date: 20180924
  Transmission Date: 20181010
  Serious: Yes (Death, Other)
  Sender: FDA-Public Use
  Company Number: US-IMPAX LABORATORIES, INC-2018-IPXL-03029

PATIENT
  Age: 84 Year
  Sex: Male

DRUGS (1)
  1. RYTARY [Suspect]
     Active Substance: CARBIDOPA\LEVODOPA
     Indication: PARKINSON^S DISEASE
     Dosage: 48.75/195 MG, THREE CAPSULES, FOUR TIMES A DAY (QID)
     Route: 065

REACTIONS (6)
  - Asthenia [Unknown]
  - Dysstasia [Unknown]
  - Fall [Unknown]
  - Weight decreased [Unknown]
  - Parkinson^s disease [Fatal]
  - Eating disorder [Unknown]

NARRATIVE: CASE EVENT DATE: 2018
